FAERS Safety Report 5975953-0 (Version None)
Quarter: 2008Q4

REPORT INFORMATION
  Report Type: 
  Country: None (occurrence: None)
  Receive Date: 20081124
  Receipt Date: 20080228
  Transmission Date: 20090506
  Serious: Yes (Other)
  Sender: FDA-Public Use
  Company Number: 45693

PATIENT
  Age: 39 Year
  Sex: Male

DRUGS (1)
  1. AMIODARONE HCL [Suspect]
     Indication: ATRIAL TACHYCARDIA
     Dosage: 0.5MG/MIN INTRAVENOUS INFUSION
     Route: 042
     Dates: start: 20080227

REACTIONS (1)
  - EXTRAVASATION [None]
